FAERS Safety Report 24650771 (Version 1)
Quarter: 2024Q4

REPORT INFORMATION
  Report Type: Other
  Country: GB (occurrence: GB)
  Receive Date: 20241122
  Receipt Date: 20241122
  Transmission Date: 20250114
  Serious: Yes (Hospitalization)
  Sender: ANI
  Company Number: GB-ANIPHARMA-012894

PATIENT
  Age: 42 Year
  Sex: Male

DRUGS (5)
  1. CHOLESTYRAMINE [Suspect]
     Active Substance: CHOLESTYRAMINE
     Indication: Bile acid malabsorption
  2. LOPERAMIDE [Concomitant]
     Active Substance: LOPERAMIDE
     Indication: Bile acid malabsorption
  3. COLESEVELAM [Concomitant]
     Active Substance: COLESEVELAM
     Indication: Bile acid malabsorption
  4. LIRAGLUTIDE [Concomitant]
     Active Substance: LIRAGLUTIDE
     Indication: Bile acid malabsorption
  5. LOPERAMIDE [Concomitant]
     Active Substance: LOPERAMIDE
     Indication: Bile acid malabsorption
     Dosage: REDUCED

REACTIONS (2)
  - Drug intolerance [Recovered/Resolved]
  - Vomiting [Recovered/Resolved]
